FAERS Safety Report 8046860-7 (Version None)
Quarter: 2012Q1

REPORT INFORMATION
  Report Type: 
  Country: None (occurrence: None)
  Receive Date: 20120116
  Receipt Date: 20120107
  Transmission Date: 20120608
  Serious: Yes (Hospitalization, Other)
  Sender: FDA-Public Use
  Company Number: US-BAYER-2011-028449

PATIENT
  Sex: Female
  Weight: 97.052 kg

DRUGS (1)
  1. YAZ [Suspect]
     Dosage: UNK
     Dates: start: 20080901, end: 20081101

REACTIONS (8)
  - EMOTIONAL DISTRESS [None]
  - PAIN [None]
  - ANXIETY [None]
  - GENERAL PHYSICAL HEALTH DETERIORATION [None]
  - CHOLECYSTECTOMY [None]
  - INJURY [None]
  - CHOLECYSTITIS CHRONIC [None]
  - ANHEDONIA [None]
